FAERS Safety Report 9592517 (Version 1)
Quarter: 2013Q3

REPORT INFORMATION
  Report Type: Spontaneous
  Country: US (occurrence: None)
  Receive Date: 20130930
  Receipt Date: 20130930
  Transmission Date: 20140515
  Serious: Yes (Other)
  Sender: FDA-Public Use
  Company Number: 1000046151

PATIENT
  Age: 64 Year
  Sex: Male

DRUGS (5)
  1. LINZESS [Suspect]
     Indication: IRRITABLE BOWEL SYNDROME
     Dosage: 290 MCG, 1 IN 1 D
     Route: 048
     Dates: start: 20130621
  2. LINZESS [Suspect]
     Indication: CONSTIPATION
     Dosage: 290 MCG, 1 IN 1 D
     Route: 048
     Dates: start: 20130621
  3. HYDROCODONE [Concomitant]
  4. OXYCONTIN [Concomitant]
  5. AMLODIPINE [Concomitant]

REACTIONS (2)
  - Diarrhoea [None]
  - Drug ineffective [None]
